FAERS Safety Report 6846875-8 (Version None)
Quarter: 2010Q3

REPORT INFORMATION
  Report Type: 
  Country: None (occurrence: None)
  Receive Date: 20100715
  Receipt Date: 20071024
  Transmission Date: 20110219
  Serious: No
  Sender: FDA-Public Use
  Company Number: US-PFIZER INC-2007079481

PATIENT
  Sex: Female
  Weight: 90.5 kg

DRUGS (3)
  1. CHANTIX [Suspect]
     Indication: SMOKING CESSATION THERAPY
     Dates: start: 20070501
  2. VERAPAMIL HYDROCHLORIDE [Suspect]
     Indication: CARDIAC DISORDER
     Dates: end: 20070910
  3. PRAVASTATIN [Suspect]
     Indication: BLOOD CHOLESTEROL
     Dates: end: 20070101

REACTIONS (6)
  - BLOOD CHOLESTEROL ABNORMAL [None]
  - EMPHYSEMA [None]
  - HEPATIC ENZYME INCREASED [None]
  - NAUSEA [None]
  - SLEEP DISORDER [None]
  - SWELLING [None]
